FAERS Safety Report 7605759-8 (Version None)
Quarter: 2011Q2

REPORT INFORMATION
  Report Type: 
  Country: None (occurrence: None)
  Receive Date: 20110624
  Receipt Date: 20110609
  Transmission Date: 20111010
  Serious: Yes (Other)
  Sender: FDA-Public Use
  Company Number: WWISSUE-614

PATIENT
  Sex: Female

DRUGS (1)
  1. HYDROCORTISONE TAB [Suspect]
     Indication: PRODUCT USED FOR UNKNOWN INDICATION
     Dosage: 3 TIMES A DAY
     Dates: start: 20110501, end: 20110513

REACTIONS (1)
  - MUSCLE TWITCHING [None]
